FAERS Safety Report 18064986 (Version 1)
Quarter: 2020Q3

REPORT INFORMATION
  Report Type: Spontaneous
  Country: US (occurrence: US)
  Receive Date: 20200723
  Receipt Date: 20200723
  Transmission Date: 20201103
  Serious: Yes (Hospitalization)
  Sender: FDA-Public Use
  Company Number: None

PATIENT
  Age: 69 Year
  Sex: Female
  Weight: 75.15 kg

DRUGS (19)
  1. ESTRADIOL. [Concomitant]
     Active Substance: ESTRADIOL
     Dates: start: 20180615
  2. SYSTANE (HYPROMELLOSE 2910 (4000 MPA.S)) [Concomitant]
     Active Substance: HYPROMELLOSE 2910 (4000 MPA.S)
     Dates: start: 20190213
  3. HYDROXYUREA. [Concomitant]
     Active Substance: HYDROXYUREA
     Dates: start: 20151105
  4. IBUPROFEN. [Concomitant]
     Active Substance: IBUPROFEN
     Dates: start: 20180918
  5. ESTROVEN [Concomitant]
     Active Substance: DIETARY SUPPLEMENT
     Dates: start: 20151105
  6. MELATONIN [Concomitant]
     Active Substance: MELATONIN
     Dates: start: 20151105
  7. ACETAMETAPHEN [Concomitant]
     Dates: start: 20151105
  8. LOW DOSE ASPIRIN [Concomitant]
     Active Substance: ASPIRIN
     Dates: start: 20151217
  9. MULTIVITAMIN DAILY [Concomitant]
     Dates: start: 20151105
  10. FLONASE [Concomitant]
     Active Substance: FLUTICASONE PROPIONATE
     Dates: start: 20180220
  11. OMEPRAZOLE. [Concomitant]
     Active Substance: OMEPRAZOLE
     Dates: start: 20151105
  12. PROBIOTIC [Concomitant]
     Active Substance: PROBIOTICS NOS
     Dates: start: 20180220
  13. VITAMIN D3 [Concomitant]
     Active Substance: CHOLECALCIFEROL
     Dates: start: 20200420
  14. DIPHENHYDRAMINE. [Concomitant]
     Active Substance: DIPHENHYDRAMINE
     Dates: start: 20151105
  15. ESTROGEL [Concomitant]
     Active Substance: ESTRADIOL
     Dates: start: 20190920
  16. FIBER ADULT GUMMIES [Concomitant]
     Dates: start: 20180220
  17. JOINT HEALTH [Concomitant]
     Dates: start: 20191126
  18. JAKAFI [Suspect]
     Active Substance: RUXOLITINIB
     Indication: POLYCYTHAEMIA VERA
     Route: 048
  19. FISH OIL [Concomitant]
     Active Substance: FISH OIL
     Dates: start: 20180220

REACTIONS (1)
  - Diverticulitis [None]

NARRATIVE: CASE EVENT DATE: 20200723
